FAERS Safety Report 21597765 (Version 1)
Quarter: 2022Q4

REPORT INFORMATION
  Report Type: Spontaneous
  Country: US (occurrence: None)
  Receive Date: 20221114
  Receipt Date: 20221114
  Transmission Date: 20230112
  Serious: Yes (unspecified)
  Sender: FDA-Public Use
  Company Number: None

PATIENT
  Age: 49 Year
  Sex: Female

DRUGS (1)
  1. PROLIA [Suspect]
     Active Substance: DENOSUMAB
     Indication: Osteoporosis
     Dates: start: 20220313, end: 20220313

REACTIONS (4)
  - Toothache [None]
  - Hyperaesthesia teeth [None]
  - Loose tooth [None]
  - Dental caries [None]

NARRATIVE: CASE EVENT DATE: 20220822
